FAERS Safety Report 4883247-X (Version None)
Quarter: 2006Q1

REPORT INFORMATION
  Report Type: 
  Country: None (occurrence: None)
  Receive Date: 20060117
  Receipt Date: 20060117
  Transmission Date: 20060701
  Serious: Yes (Other)
  Sender: FDA-Public Use
  Company Number: None

PATIENT
  Sex: Male
  Weight: 83 kg

DRUGS (1)
  1. LISINOPRIL [Suspect]
     Dosage: 5MG QD PO
     Route: 048
     Dates: start: 20050210, end: 20050801

REACTIONS (1)
  - SWELLING FACE [None]
